FAERS Safety Report 4729840-6 (Version None)
Quarter: 2005Q3

REPORT INFORMATION
  Report Type: 
  Country: None (occurrence: None)
  Receive Date: 20050801
  Receipt Date: 20050720
  Transmission Date: 20060218
  Serious: Yes (Hospitalization)
  Sender: FDA-Public Use
  Company Number: US-MERCK-0507USA03180

PATIENT
  Age: 58 Year
  Sex: Male
  Weight: 69 kg

DRUGS (12)
  1. VIOXX [Suspect]
     Route: 048
  2. TESSALON [Concomitant]
     Route: 065
  3. GUAIFENESIN [Concomitant]
     Route: 065
  4. AMOXICILLIN [Concomitant]
     Route: 065
  5. MAGNESIUM OXIDE [Concomitant]
     Route: 065
  6. ZYRTEC [Concomitant]
     Route: 065
  7. PROTONIX [Concomitant]
     Route: 065
  8. TRAMADOL MSD [Concomitant]
     Route: 065
  9. NORMODYNE [Concomitant]
     Route: 065
  10. ADVAIR DISKUS 100/50 [Concomitant]
     Route: 065
  11. ALBUTEROL [Concomitant]
     Route: 065
  12. MEGACE [Concomitant]
     Route: 065

REACTIONS (7)
  - ACUTE RESPIRATORY FAILURE [None]
  - CARDIOMYOPATHY [None]
  - CHRONIC OBSTRUCTIVE PULMONARY DISEASE [None]
  - HYPERTENSION [None]
  - MIGRAINE [None]
  - MYOCARDIAL INFARCTION [None]
  - PNEUMONIA [None]
